FAERS Safety Report 4748447-8 (Version None)
Quarter: 2005Q3

REPORT INFORMATION
  Report Type: 
  Country: None (occurrence: None)
  Receive Date: 20050817
  Receipt Date: 20050801
  Transmission Date: 20060218
  Serious: Yes (Hospitalization)
  Sender: FDA-Public Use
  Company Number: PHEH2005US04578

PATIENT
  Age: 81 Year
  Sex: Female

DRUGS (5)
  1. GLEEVEC [Suspect]
     Indication: METASTATIC NEOPLASM
     Dosage: 400 MG, QD, ORAL
     Route: 048
     Dates: start: 20050301, end: 20050416
  2. DILTIAZEM [Concomitant]
  3. LIPITOR/UNK/(ATORVASTATIN) [Concomitant]
  4. DIOVAN [Concomitant]
  5. HYDROCODONE BITARTRATE + ACETAMINOPHEN [Concomitant]

REACTIONS (5)
  - ABDOMINAL DISTENSION [None]
  - ASPIRATION PLEURAL CAVITY [None]
  - DYSPNOEA [None]
  - HEART RATE INCREASED [None]
  - PLEURAL EFFUSION [None]
